FAERS Safety Report 9210554 (Version 2)
Quarter: 2013Q3

REPORT INFORMATION
  Report Type: Spontaneous
  Country: NL (occurrence: NL)
  Receive Date: 20130404
  Receipt Date: 20130709
  Transmission Date: 20140515
  Serious: Yes (Hospitalization, Other)
  Sender: FDA-Public Use
  Company Number: NL-TEVA-395213ISR

PATIENT
  Sex: Male

DRUGS (9)
  1. OXAZEPAM 50 MG [Suspect]
     Dosage: 250 MILLIGRAM DAILY;
     Dates: end: 201301
  2. OXAZEPAM 50 MG [Suspect]
     Dosage: 150 MILLIGRAM DAILY; DISCONTINUED: DOSE WAS HEIGTHENED
     Dates: start: 201301
  3. OXAZEPAM 50 MG [Suspect]
     Dosage: 200 MILLIGRAM DAILY; CURRENT DOSING REGIMEN
  4. LOSARTAN [Concomitant]
  5. METOPROLOL [Concomitant]
  6. HYDROCHLOORTHIAZIDE 5 MG [Concomitant]
  7. LEVEMIR [Concomitant]
  8. NOVORAPID [Concomitant]
  9. AMLODIPINE [Concomitant]

REACTIONS (7)
  - Lung infection [Recovered/Resolved]
  - Oxygen saturation decreased [Recovered/Resolved]
  - Renal impairment [Recovered/Resolved]
  - Anxiety [Not Recovered/Not Resolved]
  - Thinking abnormal [Unknown]
  - Anxiety [Unknown]
  - Blood pressure increased [Not Recovered/Not Resolved]
